FAERS Safety Report 7811417-7 (Version None)
Quarter: 2011Q4

REPORT INFORMATION
  Report Type: 
  Country: None (occurrence: None)
  Receive Date: 20111013
  Receipt Date: 20111006
  Transmission Date: 20120403
  Serious: Yes (Death, Other)
  Sender: FDA-Public Use
  Company Number: US-SANOFI-AVENTIS-2011SA066336

PATIENT
  Age: 72 Year
  Sex: Male

DRUGS (3)
  1. MULTAQ [Suspect]
     Route: 048
     Dates: start: 20110801, end: 20111003
  2. TRICOR [Concomitant]
     Dates: end: 20111003
  3. BUDESONIDE/FORMOTEROL [Concomitant]
     Dates: end: 20111003

REACTIONS (2)
  - DEATH [None]
  - LUNG NEOPLASM MALIGNANT [None]
